FAERS Safety Report 5053533-1 (Version None)
Quarter: 2006Q3

REPORT INFORMATION
  Report Type: 
  Country: None (occurrence: None)
  Receive Date: 20060712
  Receipt Date: 20060629
  Transmission Date: 20061208
  Serious: Yes (Other)
  Sender: FDA-Public Use
  Company Number: SPV1-2006-00145

PATIENT
  Sex: 0

DRUGS (1)
  1. DAYTRANA    (METHYLPHENIDATE) [Suspect]
     Indication: ATTENTION DEFICIT/HYPERACTIVITY DISORDER
     Dosage: TRANSDERMAL
     Route: 062

REACTIONS (1)
  - SYNCOPE [None]
